FAERS Safety Report 10483531 (Version 2)
Quarter: 2014Q4

REPORT INFORMATION
  Report Type: Spontaneous
  Country: CO (occurrence: None)
  Receive Date: 20140926
  Receipt Date: 20141029
  Transmission Date: 20150528
  Serious: No
  Sender: FDA-Public Use
  Company Number: 2014-20357

PATIENT
  Age: 71 Year
  Sex: Male

DRUGS (1)
  1. EYLEA [Suspect]
     Active Substance: AFLIBERCEPT
     Indication: RETINAL DISORDER
     Dosage: THE TOTAL NUMBER OF EYLIA INJECTIONS ADMINISTERED WAS NOT REPORTED.
     Dates: start: 20130312

REACTIONS (4)
  - Retinal disorder [None]
  - Off label use [None]
  - Drug ineffective [None]
  - Vision blurred [None]
